FAERS Safety Report 25263715 (Version 1)
Quarter: 2025Q2

REPORT INFORMATION
  Report Type: Spontaneous
  Country: FR (occurrence: FR)
  Receive Date: 20250502
  Receipt Date: 20250502
  Transmission Date: 20250717
  Serious: Yes (Other)
  Sender: CHEPLAPHARM
  Company Number: FR-CHEPLA-2025005541

PATIENT
  Sex: Female

DRUGS (4)
  1. CLONAZEPAM [Suspect]
     Active Substance: CLONAZEPAM
     Indication: Trigeminal neuralgia
  2. ESCITALOPRAM OXALATE [Suspect]
     Active Substance: ESCITALOPRAM OXALATE
     Dosage: INCREASED THE DOSAGE TO 10MG OF SEROPLEX PER DAY?DAILY DOSE: 10 MILLIGRAM
     Dates: start: 20250427
  3. ESCITALOPRAM OXALATE [Suspect]
     Active Substance: ESCITALOPRAM OXALATE
     Dosage: DAILY DOSE: 5 MILLIGRAM
  4. ESCITALOPRAM OXALATE [Suspect]
     Active Substance: ESCITALOPRAM OXALATE

REACTIONS (8)
  - Syncope [Unknown]
  - Somnolence [Unknown]
  - Depressed mood [Unknown]
  - Depression [Unknown]
  - Nausea [Unknown]
  - Blood pressure decreased [Unknown]
  - Fatigue [Unknown]
  - Product use in unapproved indication [Unknown]

NARRATIVE: CASE EVENT DATE: 20250428
